FAERS Safety Report 7617891-3 (Version None)
Quarter: 2011Q3

REPORT INFORMATION
  Report Type: 
  Country: None (occurrence: None)
  Receive Date: 20110718
  Receipt Date: 20110706
  Transmission Date: 20111222
  Serious: Yes (Hospitalization)
  Sender: FDA-Public Use
  Company Number: DE-ELI_LILLY_AND_COMPANY-DE201104001672

PATIENT
  Age: 87 Year
  Sex: Female

DRUGS (8)
  1. DIOVAN [Concomitant]
  2. VIANI [Concomitant]
  3. ASPIRIN [Concomitant]
  4. NEBIVOLOL [Concomitant]
  5. SPIRONOLACTONE [Concomitant]
  6. FORTEO [Suspect]
     Indication: OSTEOPOROSIS
     Dosage: UNK, QD
     Route: 058
     Dates: start: 20100406
  7. PANTOPRAZOLE SODIUM [Concomitant]
  8. TORSEMIDE [Concomitant]

REACTIONS (5)
  - FUNGAL INFECTION [None]
  - NASOPHARYNGITIS [None]
  - DIARRHOEA [None]
  - VOMITING [None]
  - BRONCHITIS [None]
